FAERS Safety Report 23680950 (Version 1)
Quarter: 2024Q1

REPORT INFORMATION
  Report Type: Spontaneous
  Country: CN (occurrence: CN)
  Receive Date: 20240328
  Receipt Date: 20240328
  Transmission Date: 20240410
  Serious: Yes (Other)
  Sender: FDA-Public Use
  Company Number: CN-002147023-NVSC2024CN063834

PATIENT
  Age: 63 Year
  Sex: Male

DRUGS (1)
  1. SACUBITRIL\VALSARTAN [Suspect]
     Active Substance: SACUBITRIL\VALSARTAN
     Indication: Cardiorenal syndrome
     Dosage: 100 MG, BID
     Route: 065

REACTIONS (2)
  - Cardiac failure [Recovering/Resolving]
  - Chest discomfort [Recovering/Resolving]
